FAERS Safety Report 4711901-9 (Version None)
Quarter: 2005Q3

REPORT INFORMATION
  Report Type: 
  Country: None (occurrence: None)
  Receive Date: 20050708
  Receipt Date: 20050427
  Transmission Date: 20060218
  Serious: Yes (Other)
  Sender: FDA-Public Use
  Company Number: US-2005-006645

PATIENT
  Age: 37 Year
  Sex: Female

DRUGS (1)
  1. ULTRAVIST 300 [Suspect]
     Indication: COMPUTERISED TOMOGRAM THORAX
     Dosage: 95 ML, 1 DOSE, INTRAVENOUS
     Route: 042
     Dates: start: 20050413, end: 20050413

REACTIONS (3)
  - CHEST DISCOMFORT [None]
  - DIZZINESS [None]
  - URTICARIA [None]
